FAERS Safety Report 7117405-0 (Version None)
Quarter: 2010Q4

REPORT INFORMATION
  Report Type: 
  Country: None (occurrence: None)
  Receive Date: 20101122
  Receipt Date: 20101112
  Transmission Date: 20110411
  Serious: Yes (Other)
  Sender: FDA-Public Use
  Company Number: JP-ABBOTT-10P-087-0685252-00

PATIENT
  Sex: Male
  Weight: 59.7 kg

DRUGS (19)
  1. SEVOFLURANE [Suspect]
     Indication: SEDATIVE THERAPY
     Dosage: INDUCTION: 1%, MAINTENANCE: 1.2-1%
     Route: 055
     Dates: start: 20100330, end: 20100330
  2. ZYPREXA [Suspect]
     Indication: SCHIZOPHRENIA
     Route: 048
     Dates: end: 20100329
  3. ULTIVA [Suspect]
     Indication: ANALGESIC THERAPY
     Dosage: 1749.21MCG DAILY/ 0.2-0.6 MCG/MG/MIN
     Route: 042
     Dates: start: 20100330
  4. ULTIVA [Suspect]
     Dosage: 0.1 MICROGRAM/KILOGRAM/MINUTE
     Route: 042
     Dates: end: 20100330
  5. ROHYPNOL [Suspect]
     Indication: SCHIZOPHRENIA
     Route: 048
     Dates: end: 20100329
  6. LINTON [Suspect]
     Indication: SCHIZOPHRENIA
     Route: 048
     Dates: end: 20100329
  7. RISPERDAL [Suspect]
     Indication: SCHIZOPHRENIA
     Route: 048
     Dates: end: 20100329
  8. TASMOLIN [Suspect]
     Indication: SCHIZOPHRENIA
     Route: 048
     Dates: end: 20100329
  9. PROPOFOL [Concomitant]
     Indication: GENERAL ANAESTHESIA
     Route: 042
     Dates: start: 20100330, end: 20100330
  10. ROCURONIUM BROMIDE [Concomitant]
     Indication: HYPOTONIA
     Route: 042
     Dates: start: 20100330, end: 20100330
  11. ROCURONIUM BROMIDE [Concomitant]
     Route: 042
     Dates: start: 20100330, end: 20100330
  12. HYDROCORTONE [Concomitant]
     Indication: SHOCK
     Route: 042
     Dates: start: 20100330, end: 20100330
  13. HYDROCORTONE [Concomitant]
     Indication: PROPHYLAXIS
  14. ROPIVACAINE HYDROCHLORIDE [Concomitant]
     Indication: ANALGESIC THERAPY
     Dosage: 2 MILLILITER/HOUR
     Route: 008
     Dates: start: 20100330, end: 20100330
  15. FENTANYL CITRATE [Concomitant]
     Indication: ANALGESIC THERAPY
     Route: 042
     Dates: start: 20100330, end: 20100330
  16. RED BLOOD CELLS [Concomitant]
     Indication: OPERATIVE HAEMORRHAGE
     Dates: start: 20100330, end: 20100330
  17. FRESH FROZEN PLASMA [Concomitant]
     Indication: OPERATIVE HAEMORRHAGE
     Dates: start: 20100330, end: 20100330
  18. FAMOTIDINE [Concomitant]
     Indication: PRODUCT USED FOR UNKNOWN INDICATION
     Dosage: 20MG DAILY
     Route: 042
     Dates: end: 20100330
  19. DOPAMINE HYDROCHLORIDE [Concomitant]
     Indication: PRODUCT USED FOR UNKNOWN INDICATION
     Dosage: 1-3-3.5/MCG/KG/MIN
     Route: 042

REACTIONS (1)
  - CARDIAC FAILURE [None]
